FAERS Safety Report 14938191 (Version 1)
Quarter: 2018Q2

REPORT INFORMATION
  Report Type: Spontaneous
  Country: IE (occurrence: IE)
  Receive Date: 20180525
  Receipt Date: 20180525
  Transmission Date: 20180711
  Serious: Yes (Hospitalization, Other)
  Sender: FDA-Public Use
  Company Number: IE-IPSEN BIOPHARMACEUTICALS, INC.-2018-07457

PATIENT
  Sex: Male

DRUGS (1)
  1. SOMATULINE AUTOGEL 120MG [Suspect]
     Active Substance: LANREOTIDE ACETATE
     Indication: NEUROENDOCRINE TUMOUR
     Dosage: 120 MG
     Route: 065

REACTIONS (4)
  - Confusional state [Unknown]
  - Depressed level of consciousness [Unknown]
  - Ill-defined disorder [Unknown]
  - Dementia [Unknown]
